FAERS Safety Report 5962072-2 (Version None)
Quarter: 2008Q4

REPORT INFORMATION
  Report Type: 
  Country: None (occurrence: None)
  Receive Date: 20081121
  Receipt Date: 20081112
  Transmission Date: 20090506
  Serious: Yes (Other)
  Sender: FDA-Public Use
  Company Number: PHHY2008BR14298

PATIENT
  Age: 40 Year
  Sex: Female
  Weight: 59 kg

DRUGS (1)
  1. LUDIOMIL [Suspect]
     Indication: DEPRESSION
     Dosage: 25 MG, QD
     Dates: start: 20060101, end: 20080501

REACTIONS (10)
  - ABDOMINAL PAIN UPPER [None]
  - BLOOD THYROID STIMULATING HORMONE DECREASED [None]
  - DEPRESSION [None]
  - DRY MOUTH [None]
  - EATING DISORDER [None]
  - HYPERTHYROIDISM [None]
  - NECK PAIN [None]
  - OESOPHAGITIS [None]
  - PHARYNGITIS [None]
  - THYROXINE INCREASED [None]
